FAERS Safety Report 16470697 (Version 1)
Quarter: 2019Q2

REPORT INFORMATION
  Report Type: Spontaneous
  Country: US (occurrence: US)
  Receive Date: 20190515
  Receipt Date: 20190515
  Transmission Date: 20190711
  Serious: Yes (Other)
  Sender: FDA-Public Use
  Company Number: None

PATIENT
  Age: 58 Year
  Sex: Male

DRUGS (1)
  1. CEFTRIAXONE SODIUM 2  GM APOTEX [Suspect]
     Active Substance: CEFTRIAXONE SODIUM
     Indication: OSTEOMYELITIS
     Route: 042
     Dates: start: 20190430, end: 201905

REACTIONS (2)
  - Chest pain [None]
  - Dyspnoea [None]

NARRATIVE: CASE EVENT DATE: 201905
